FAERS Safety Report 5964569-8 (Version None)
Quarter: 2008Q4

REPORT INFORMATION
  Report Type: 
  Country: None (occurrence: None)
  Receive Date: 20081119
  Receipt Date: 20081104
  Transmission Date: 20090506
  Serious: Yes (Life-Threatening, Hospitalization)
  Sender: FDA-Public Use
  Company Number: 2008S1019848

PATIENT
  Age: 42 Year
  Sex: Female

DRUGS (6)
  1. OMEPRAZOLE [Suspect]
     Indication: ALCOHOLIC LIVER DISEASE
     Dosage: 40 MG; ORAL
     Route: 048
     Dates: start: 20080922, end: 20080930
  2. SPIRONOLACTONE [Suspect]
     Indication: ALCOHOLIC LIVER DISEASE
     Dosage: 25 MG; ORAL
     Route: 048
     Dates: start: 20080922, end: 20080930
  3. CHLORPHENIRAMINE MALEATE [Concomitant]
  4. PREDNISOLONE [Concomitant]
  5. THIAMINE HCL [Concomitant]
  6. VITAMIN B COMPLEX CAP [Concomitant]

REACTIONS (1)
  - STEVENS-JOHNSON SYNDROME [None]
